FAERS Safety Report 17450135 (Version 1)
Quarter: 2020Q1

REPORT INFORMATION
  Report Type: Spontaneous
  Country: US (occurrence: US)
  Receive Date: 20200224
  Receipt Date: 20200224
  Transmission Date: 20200409
  Serious: No
  Sender: FDA-Public Use
  Company Number: US-BTCP PHARMA-INS201901-000307

PATIENT
  Sex: Male

DRUGS (2)
  1. SUBSYS [Suspect]
     Active Substance: FENTANYL
     Indication: BACK PAIN
     Route: 060
  2. MORPHINE [Concomitant]
     Active Substance: MORPHINE

REACTIONS (4)
  - Oral discomfort [Recovered/Resolved]
  - Vomiting [Unknown]
  - Hypersensitivity [Unknown]
  - Nausea [Recovered/Resolved]
